FAERS Safety Report 7478926-4 (Version None)
Quarter: 2011Q2

REPORT INFORMATION
  Report Type: 
  Country: None (occurrence: None)
  Receive Date: 20110513
  Receipt Date: 20110506
  Transmission Date: 20111010
  Serious: Yes (Other)
  Sender: FDA-Public Use
  Company Number: US-SANOFI-AVENTIS-2011SA028568

PATIENT
  Sex: Male

DRUGS (7)
  1. ACTOS [Concomitant]
  2. LISINOPRIL [Concomitant]
  3. OPTICLICK [Suspect]
  4. GLYBURIDE [Concomitant]
  5. LANTUS [Suspect]
     Dosage: DOSE:25 UNIT(S)
     Route: 058
  6. AMLODIPINE BESYLATE [Concomitant]
  7. LIPITOR [Concomitant]

REACTIONS (2)
  - ROAD TRAFFIC ACCIDENT [None]
  - HYPOGLYCAEMIC UNCONSCIOUSNESS [None]
